FAERS Safety Report 14756899 (Version 13)
Quarter: 2018Q4

REPORT INFORMATION
  Report Type: Report from Study
  Country: CA (occurrence: CA)
  Receive Date: 20180413
  Receipt Date: 20181224
  Transmission Date: 20190204
  Serious: Yes (Other)
  Sender: FDA-Public Use
  Company Number: PHHY2016CA108834

PATIENT
  Age: 59 Year
  Sex: Male

DRUGS (14)
  1. QUINAPRIL. [Concomitant]
     Active Substance: QUINAPRIL
     Indication: PRODUCT USED FOR UNKNOWN INDICATION
     Dosage: UNK
     Route: 065
  2. TRAJENTA [Concomitant]
     Active Substance: LINAGLIPTIN
     Indication: PRODUCT USED FOR UNKNOWN INDICATION
     Dosage: 5 MG, BID
     Route: 065
     Dates: start: 20171018
  3. SANDOSTATIN LAR DEPOT [Suspect]
     Active Substance: OCTREOTIDE ACETATE
     Indication: CARCINOID TUMOUR
     Dosage: 20 MG, Q4W
     Route: 030
     Dates: start: 20150904, end: 20160825
  4. SANDOSTATIN LAR DEPOT [Suspect]
     Active Substance: OCTREOTIDE ACETATE
     Dosage: 20 MG, QMO (EVERY 4 WEEKS)
     Route: 030
     Dates: start: 20160922
  5. AMLODIPINE [Suspect]
     Active Substance: AMLODIPINE BESYLATE
     Indication: PRODUCT USED FOR UNKNOWN INDICATION
     Route: 065
  6. IMODIUM [Suspect]
     Active Substance: LOPERAMIDE HYDROCHLORIDE
     Indication: PRODUCT USED FOR UNKNOWN INDICATION
     Dosage: UNK
     Route: 065
  7. METFORMIN HYDROCHLORIDE. [Suspect]
     Active Substance: METFORMIN HYDROCHLORIDE
     Indication: PRODUCT USED FOR UNKNOWN INDICATION
     Dosage: 2 DF, BID (1000 MG)
     Route: 065
  8. LUTETIUM (LU 177) [Concomitant]
     Active Substance: LUTETIUM LU-177
     Dosage: UNK
     Route: 065
     Dates: start: 20180919
  9. ROSUVASTATIN. [Suspect]
     Active Substance: ROSUVASTATIN
     Indication: PRODUCT USED FOR UNKNOWN INDICATION
     Dosage: 5 MG, QHS
     Route: 065
  10. ZOPICLONE [Suspect]
     Active Substance: ZOPICLONE
     Indication: PRODUCT USED FOR UNKNOWN INDICATION
     Dosage: UNK
     Route: 065
  11. HYDROCHLOROTHIAZIDE. [Concomitant]
     Active Substance: HYDROCHLOROTHIAZIDE
     Indication: PRODUCT USED FOR UNKNOWN INDICATION
     Dosage: 25 MG, QD
     Route: 065
     Dates: start: 2015
  12. LUTETIUM (LU 177) [Concomitant]
     Active Substance: LUTETIUM LU-177
     Indication: PRODUCT USED FOR UNKNOWN INDICATION
     Dosage: EVERY 9 WEEKS
     Route: 065
     Dates: start: 2016
  13. LUTETIUM (LU 177) [Concomitant]
     Active Substance: LUTETIUM LU-177
     Dosage: UNK
     Route: 065
     Dates: start: 20170302
  14. GLYBURIDE. [Concomitant]
     Active Substance: GLYBURIDE
     Indication: PRODUCT USED FOR UNKNOWN INDICATION
     Dosage: 5 MG, BID
     Route: 065
     Dates: start: 20161201

REACTIONS (25)
  - Aspartate aminotransferase increased [Unknown]
  - Platelet count decreased [Unknown]
  - Glycosylated haemoglobin increased [Unknown]
  - 5-hydroxyindolacetic acid in urine increased [Unknown]
  - Syncope [Unknown]
  - Hepatic neoplasm [Unknown]
  - Haematocrit decreased [Unknown]
  - Blood mercury abnormal [Unknown]
  - Gamma-glutamyltransferase increased [Unknown]
  - Diarrhoea [Unknown]
  - Blood potassium decreased [Unknown]
  - Red blood cell count decreased [Unknown]
  - Vomiting [Unknown]
  - Pruritus [Unknown]
  - Blood follicle stimulating hormone increased [Unknown]
  - Urticaria [Unknown]
  - Low density lipoprotein decreased [Unknown]
  - Arteriosclerosis coronary artery [Unknown]
  - Neoplasm [Recovering/Resolving]
  - Haemoglobin decreased [Unknown]
  - Blood glucose increased [Recovering/Resolving]
  - Inappropriate schedule of product administration [Unknown]
  - Blood pressure systolic increased [Unknown]
  - Nausea [Unknown]
  - Expired product administered [Unknown]

NARRATIVE: CASE EVENT DATE: 20150904
